FAERS Safety Report 14821351 (Version 1)
Quarter: 2018Q2

REPORT INFORMATION
  Report Type: Report from Study
  Country: US (occurrence: US)
  Receive Date: 20180427
  Receipt Date: 20180427
  Transmission Date: 20180711
  Serious: Yes (Other)
  Sender: FDA-Public Use
  Company Number: US-JAZZ-2018-US-004407

PATIENT
  Age: 32 Year
  Sex: Female

DRUGS (12)
  1. SPIRONOLACTONE. [Concomitant]
     Active Substance: SPIRONOLACTONE
     Indication: POLYCYSTIC OVARIES
  2. TRINESSA LO [Concomitant]
     Active Substance: ETHINYL ESTRADIOL\NORGESTIMATE
  3. XYREM [Suspect]
     Active Substance: SODIUM OXYBATE
     Indication: NARCOLEPSY
     Dosage: 2.25 G, BID
     Route: 048
     Dates: start: 20180309, end: 201803
  4. EPIPEN [Concomitant]
     Active Substance: EPINEPHRINE
  5. TRINESSA [Concomitant]
     Active Substance: ETHINYL ESTRADIOL\NORGESTIMATE
     Indication: POLYCYSTIC OVARIES
  6. XYREM [Suspect]
     Active Substance: SODIUM OXYBATE
     Dosage: 3.75 G, BID
     Route: 048
     Dates: start: 201803
  7. FLUVOXAMINE MALEATE. [Concomitant]
     Active Substance: FLUVOXAMINE MALEATE
  8. FLUVOXAMINE [Concomitant]
     Active Substance: FLUVOXAMINE
     Indication: DEPRESSION
  9. CRANBERRY EXTRACT [Concomitant]
     Active Substance: CRANBERRY JUICE
  10. MAGNESIUM CHELATE [Concomitant]
     Active Substance: MAGNESIUM
  11. XYREM [Suspect]
     Active Substance: SODIUM OXYBATE
     Indication: CATAPLEXY
     Dosage: 3 G, BID
     Route: 048
     Dates: start: 201803, end: 201803
  12. TRETINOIN. [Concomitant]
     Active Substance: TRETINOIN

REACTIONS (13)
  - Thinking abnormal [Not Recovered/Not Resolved]
  - Abnormal sleep-related event [Unknown]
  - Muscle tightness [Not Recovered/Not Resolved]
  - Soliloquy [Not Recovered/Not Resolved]
  - Bruxism [Not Recovered/Not Resolved]
  - Head discomfort [Not Recovered/Not Resolved]
  - Disinhibition [Not Recovered/Not Resolved]
  - Vomiting [Unknown]
  - Diarrhoea [Unknown]
  - Nausea [Not Recovered/Not Resolved]
  - Enuresis [Unknown]
  - Therapeutic procedure [Unknown]
  - Tremor [Unknown]

NARRATIVE: CASE EVENT DATE: 20180309
